FAERS Safety Report 7682225-5 (Version None)
Quarter: 2011Q3

REPORT INFORMATION
  Report Type: 
  Country: None (occurrence: None)
  Receive Date: 20110815
  Receipt Date: 20110809
  Transmission Date: 20111222
  Serious: No
  Sender: FDA-Public Use
  Company Number: US-PFIZER INC-2011183048

PATIENT
  Sex: Male

DRUGS (2)
  1. EFFEXOR XR [Suspect]
     Dosage: 37.5 MG
  2. EFFEXOR XR [Suspect]
     Indication: DEPRESSION
     Dosage: 75 MG

REACTIONS (6)
  - APATHY [None]
  - WITHDRAWAL SYNDROME [None]
  - INFLUENZA LIKE ILLNESS [None]
  - FEELING ABNORMAL [None]
  - SEXUAL DYSFUNCTION [None]
  - FATIGUE [None]
